FAERS Safety Report 5266946-X (Version None)
Quarter: 2007Q1

REPORT INFORMATION
  Report Type: 
  Country: None (occurrence: None)
  Receive Date: 20070316
  Receipt Date: 20070306
  Transmission Date: 20070707
  Serious: Yes (Hospitalization, Other)
  Sender: FDA-Public Use
  Company Number: US-AVENTIS-200712096GDDC

PATIENT
  Age: 72 Year
  Sex: Male
  Weight: 146 kg

DRUGS (3)
  1. TAXOTERE [Suspect]
     Indication: PROSTATE CANCER
     Route: 042
     Dates: start: 20070222, end: 20070222
  2. OXALIPLATIN [Suspect]
     Indication: PROSTATE CANCER
     Route: 042
     Dates: start: 20070222, end: 20070222
  3. NEULASTA [Concomitant]
     Dosage: DOSE: UNK
     Dates: start: 20070223

REACTIONS (7)
  - BLINDNESS [None]
  - ENDOCARDITIS [None]
  - INFECTION [None]
  - PANOPHTHALMITIS [None]
  - PYREXIA [None]
  - RENAL FAILURE [None]
  - SEPSIS [None]
